FAERS Safety Report 12540696 (Version 2)
Quarter: 2016Q4

REPORT INFORMATION
  Report Type: Spontaneous
  Country: US (occurrence: US)
  Receive Date: 20160708
  Receipt Date: 20161012
  Transmission Date: 20170207
  Serious: No
  Sender: FDA-Public Use
  Company Number: US-TEVA-653973USA

PATIENT
  Sex: Female

DRUGS (2)
  1. ZECUITY [Suspect]
     Active Substance: SUMATRIPTAN SUCCINATE
     Indication: HEADACHE
     Route: 062
  2. NADOLOL. [Concomitant]
     Active Substance: NADOLOL

REACTIONS (8)
  - Application site paraesthesia [Recovered/Resolved]
  - Drug ineffective [Unknown]
  - Application site discolouration [Recovered/Resolved]
  - Application site pain [Recovered/Resolved]
  - Application site erythema [Recovered/Resolved]
  - Circumstance or information capable of leading to medication error [Unknown]
  - Application site irritation [Recovered/Resolved]
  - Application site discomfort [Recovered/Resolved]
